FAERS Safety Report 7883494-9 (Version None)
Quarter: 2011Q4

REPORT INFORMATION
  Report Type: 
  Country: None (occurrence: None)
  Receive Date: 20111102
  Receipt Date: 20110323
  Transmission Date: 20120403
  Serious: No
  Sender: FDA-Public Use
  Company Number: US-GLAXOSMITHKLINE-A0919563A

PATIENT
  Age: 68 Year
  Sex: Female

DRUGS (3)
  1. SYNTHROID [Concomitant]
  2. PROPAFENONE HYDROCHLORIDE [Suspect]
     Indication: SUPRAVENTRICULAR TACHYCARDIA
     Route: 048
  3. RYTHMOL SR [Suspect]
     Indication: SUPRAVENTRICULAR TACHYCARDIA
     Route: 048
     Dates: start: 20080101

REACTIONS (1)
  - CARDIAC DISORDER [None]
